FAERS Safety Report 20169752 (Version 1)
Quarter: 2021Q4

REPORT INFORMATION
  Report Type: Spontaneous
  Country: US (occurrence: US)
  Receive Date: 20211210
  Receipt Date: 20211210
  Transmission Date: 20220303
  Serious: Yes (Other)
  Sender: FDA-Public Use
  Company Number: US-GLAXOSMITHKLINE- US2021GSK252521

PATIENT
  Sex: Female

DRUGS (6)
  1. RANITIDINE [Suspect]
     Active Substance: RANITIDINE
     Indication: Gastrooesophageal reflux disease
     Dosage: 150 MG, TARTED 8/15/2016 AT 150MG DAILY UNTIL APPROXIMATELY 11/2016
     Dates: start: 201608, end: 201710
  2. RANITIDINE [Suspect]
     Active Substance: RANITIDINE
     Indication: Chest pain
     Dosage: UNK, AS NEEDED BASIS
     Dates: start: 201608, end: 201710
  3. RANITIDINE [Suspect]
     Active Substance: RANITIDINE
     Indication: Pruritus
  4. RANITIDINE [Suspect]
     Active Substance: RANITIDINE
     Indication: Gastrooesophageal reflux disease
     Dosage: 150 MG, TARTED 8/15/2016 AT 150MG DAILY UNTIL APPROXIMATELY 11/2016
     Dates: start: 201608, end: 201710
  5. RANITIDINE [Suspect]
     Active Substance: RANITIDINE
     Indication: Chest pain
     Dosage: UNK, AS NEEDED BASIS
     Dates: start: 201608, end: 201710
  6. RANITIDINE [Suspect]
     Active Substance: RANITIDINE
     Indication: Pruritus

REACTIONS (1)
  - Breast cancer [Unknown]
